FAERS Safety Report 18340723 (Version 1)
Quarter: 2020Q4

REPORT INFORMATION
  Report Type: Spontaneous
  Country: BR (occurrence: US)
  Receive Date: 20201002
  Receipt Date: 20201002
  Transmission Date: 20210113
  Serious: No
  Sender: FDA-Public Use
  Company Number: US-GE HEALTHCARE LIFE SCIENCES-2020CSU003572

PATIENT
  Age: 24 Year
  Sex: Male
  Weight: 132.43 kg

DRUGS (6)
  1. HALOPERIDOL. [Concomitant]
     Active Substance: HALOPERIDOL
     Indication: TIC
     Dosage: 5MG/ AS NEEDED
     Route: 042
     Dates: start: 2019
  2. LAMOTRIGINE. [Concomitant]
     Active Substance: LAMOTRIGINE
     Indication: BIPOLAR DISORDER
     Dosage: 150 MG, QD
     Route: 048
     Dates: start: 2018
  3. CERETEC [Suspect]
     Active Substance: TECHNETIUM TC-99M EXAMETAZIME
     Indication: SINGLE PHOTON EMISSION COMPUTERISED TOMOGRAM
     Dosage: 1073 MBQ (29MCI), SINGLE
     Route: 042
     Dates: start: 20200226, end: 20200226
  4. ZYPREXA [Concomitant]
     Active Substance: OLANZAPINE
     Indication: BIPOLAR DISORDER
     Dosage: 15 MG, BID
     Route: 048
     Dates: start: 2018
  5. BUSPIRONE HYDROCHLORIDE. [Concomitant]
     Active Substance: BUSPIRONE HYDROCHLORIDE
     Indication: ANXIETY
     Dosage: 15 MG, TID
     Route: 048
     Dates: start: 2018
  6. CERETEC [Suspect]
     Active Substance: TECHNETIUM TC-99M EXAMETAZIME
     Indication: SENSATION OF BLOOD FLOW

REACTIONS (2)
  - No adverse event [Recovered/Resolved]
  - Radioisotope scan abnormal [Recovered/Resolved]

NARRATIVE: CASE EVENT DATE: 20200226
